FAERS Safety Report 9669781 (Version 1)
Quarter: 2013Q4

REPORT INFORMATION
  Report Type: Spontaneous
  Country: CH (occurrence: CH)
  Receive Date: 20131105
  Receipt Date: 20131105
  Transmission Date: 20140711
  Serious: Yes (Death)
  Sender: FDA-Public Use
  Company Number: CH-009507513-1311CHE000241

PATIENT
  Sex: Male

DRUGS (1)
  1. REMERON [Suspect]
     Route: 048

REACTIONS (1)
  - Completed suicide [Fatal]
